FAERS Safety Report 10081555 (Version 1)
Quarter: 2014Q2

REPORT INFORMATION
  Report Type: Not Available
  Country: GB (occurrence: GB)
  Receive Date: 20140416
  Receipt Date: 20140416
  Transmission Date: 20141212
  Serious: Yes (Other)
  Sender: FDA-Public Use
  Company Number: GB-NAPPMUNDI-USA-2014-0112781

PATIENT
  Age: 80 Year
  Sex: Female

DRUGS (9)
  1. TRAMADOL (SIMILAR TO NDA 21-745) [Suspect]
     Indication: SKIN ULCER
     Dosage: UNK
  2. TRAMADOL (SIMILAR TO NDA 21-745) [Suspect]
     Indication: PAIN
  3. OXYCONTIN (NDA 22-272) [Suspect]
     Indication: PRODUCT USED FOR UNKNOWN INDICATION
     Dosage: 20 MG, UNK
     Route: 048
  4. OXYCONTIN (NDA 22-272) [Suspect]
     Dosage: 40 UNK, UNK
     Route: 048
  5. ACECLOFENAC [Suspect]
     Indication: PRODUCT USED FOR UNKNOWN INDICATION
  6. FERROUS SULFATE [Suspect]
     Indication: PRODUCT USED FOR UNKNOWN INDICATION
  7. MACRODANTIN [Suspect]
     Indication: INFECTION
     Dosage: 50 MG, QID
     Dates: start: 20140306, end: 20140309
  8. WARFARIN [Suspect]
     Indication: PRODUCT USED FOR UNKNOWN INDICATION
     Dosage: 2.5 MG, UNK
  9. ZINC [Suspect]
     Indication: PRODUCT USED FOR UNKNOWN INDICATION
     Dosage: UNK, UNK

REACTIONS (2)
  - Macular degeneration [Not Recovered/Not Resolved]
  - Vision blurred [Not Recovered/Not Resolved]
